FAERS Safety Report 8263623-8 (Version None)
Quarter: 2012Q2

REPORT INFORMATION
  Report Type: 
  Country: None (occurrence: None)
  Receive Date: 20120405
  Receipt Date: 20120404
  Transmission Date: 20120825
  Serious: Yes (Life-Threatening)
  Sender: FDA-Public Use
  Company Number: FI-B.I. PHARMACEUTICALS,INC./RIDGEFIELD-2011-SW-00277SF

PATIENT
  Age: 68 Year
  Sex: Male

DRUGS (8)
  1. NEBIVOLOL [Concomitant]
  2. DIGOXIN [Concomitant]
  3. ATORVASTATIN CALCIUM [Concomitant]
  4. PRADAXA [Suspect]
     Indication: ATRIAL FIBRILLATION
     Dosage: 300 MG
  5. SIMVASTATIN [Concomitant]
  6. PREDNISOLONE [Concomitant]
     Indication: LUNG DISORDER
  7. FUROSEMIDE [Concomitant]
  8. FAMOTIDINE [Concomitant]

REACTIONS (8)
  - PROCEDURAL COMPLICATION [None]
  - CARDIOVASCULAR INSUFFICIENCY [None]
  - INTESTINAL PERFORATION [None]
  - INFECTIOUS PERITONITIS [None]
  - SEPSIS [None]
  - RESPIRATORY FAILURE [None]
  - RENAL FAILURE ACUTE [None]
  - HAEMORRHAGE [None]
